FAERS Safety Report 4609494-X (Version None)
Quarter: 2005Q1

REPORT INFORMATION
  Report Type: 
  Country: None (occurrence: None)
  Receive Date: 20050314
  Receipt Date: 20050314
  Transmission Date: 20050727
  Serious: Yes (Hospitalization)
  Sender: FDA-Public Use
  Company Number: None

PATIENT
  Age: 56 Year
  Sex: Male

DRUGS (6)
  1. WARFARIN [Suspect]
     Indication: DEEP VEIN THROMBOSIS
     Dosage: 5 MG QD
     Dates: start: 20041001
  2. DOXYCYCLINE [Concomitant]
  3. DARBOPOETIN [Concomitant]
  4. BUPROPION HCL [Concomitant]
  5. ACETAMINOPHEN [Concomitant]
  6. CELECOXIB [Concomitant]

REACTIONS (1)
  - UPPER GASTROINTESTINAL HAEMORRHAGE [None]
